FAERS Safety Report 7626893-2 (Version None)
Quarter: 2011Q3

REPORT INFORMATION
  Report Type: 
  Country: None (occurrence: None)
  Receive Date: 20110721
  Receipt Date: 20110712
  Transmission Date: 20111222
  Serious: Yes (Other)
  Sender: FDA-Public Use
  Company Number: US-BAYER-200938753NA

PATIENT
  Age: 74 Year
  Sex: Female

DRUGS (17)
  1. TRASYLOL [Suspect]
     Indication: PRODUCT USED FOR UNKNOWN INDICATION
     Route: 042
     Dates: start: 20021125
  2. PROTONIX [Concomitant]
     Dosage: 40 MG, QD
     Route: 048
  3. CARDIZEM CD [Concomitant]
     Dosage: 360 MG, IN THE AM
     Route: 048
  4. NITROGLYCERIN [Concomitant]
     Dosage: AS NEEDED
     Route: 048
  5. RENAGEL [Concomitant]
     Dosage: 800 MG, TID
     Route: 048
  6. NITROGLYCERIN [Concomitant]
     Dosage: 1 INCH Q6HR
     Route: 061
  7. CARDIZEM CD [Concomitant]
     Dosage: 120 MG, IN THE PM
     Route: 048
  8. ACETYLSALICYLIC ACID SRT [Concomitant]
     Dosage: DAILY
     Route: 048
  9. DOPAMINE HCL [Concomitant]
     Dosage: UNK
     Route: 042
     Dates: start: 20021125
  10. SODIUM BICARBONATE [Concomitant]
     Dosage: 300 MG, BID
     Route: 048
  11. EPOGEN [Concomitant]
     Dosage: 10000 U, UNK
     Route: 058
  12. FERROUS SULFATE TAB [Concomitant]
     Dosage: DAILY
     Route: 048
  13. LEVOPHED [Concomitant]
     Dosage: UNK
     Route: 042
     Dates: start: 20021125
  14. LASIX [Concomitant]
     Dosage: 80 MG, QD
     Route: 048
  15. CLONIDINE [Concomitant]
     Dosage: 0.2 MG, TID
     Route: 048
  16. NORVASC [Concomitant]
     Dosage: 10 MG, QD
     Route: 048
  17. EPINEPHRINE [Concomitant]
     Dosage: UNK
     Route: 042
     Dates: start: 20021125

REACTIONS (9)
  - UNEVALUABLE EVENT [None]
  - EMOTIONAL DISTRESS [None]
  - PAIN [None]
  - RENAL IMPAIRMENT [None]
  - STRESS [None]
  - ANXIETY [None]
  - FEAR [None]
  - RENAL INJURY [None]
  - RENAL FAILURE [None]
